FAERS Safety Report 7420722-8 (Version None)
Quarter: 2011Q2

REPORT INFORMATION
  Report Type: 
  Country: None (occurrence: None)
  Receive Date: 20110408
  Receipt Date: 20110331
  Transmission Date: 20111010
  Serious: Yes (Hospitalization, Other)
  Sender: FDA-Public Use
  Company Number: EU2011-10022

PATIENT
  Age: 73 Year
  Sex: Male

DRUGS (11)
  1. CLOPIDOGREL [Concomitant]
  2. SIMVASTATIN [Concomitant]
  3. MOTILIUM [Concomitant]
  4. HYDREA [Concomitant]
  5. OMEPRAZOL (OMEPRAZOL) [Concomitant]
  6. METFORMIN HCL [Concomitant]
  7. HYDROCHLOROTHIAZIDE [Concomitant]
  8. PLETAL [Suspect]
     Indication: INTERMITTENT CLAUDICATION
     Dosage: 100 MG MILLIGRAM(S), BID, ORAL
     Route: 048
     Dates: start: 20101217, end: 20110102
  9. LANTUS [Concomitant]
  10. TAMSULOSIN (TAMUSULOSIN) [Concomitant]
  11. ENALAPRIL MALEATE [Concomitant]

REACTIONS (4)
  - PANCREATIC CARCINOMA [None]
  - HEPATITIS CHOLESTATIC [None]
  - COAGULOPATHY [None]
  - JAUNDICE [None]
